FAERS Safety Report 5509767-2 (Version None)
Quarter: 2007Q4

REPORT INFORMATION
  Report Type: 
  Country: None (occurrence: None)
  Receive Date: 20071108
  Receipt Date: 20071107
  Transmission Date: 20080405
  Serious: Yes (Life-Threatening)
  Sender: FDA-Public Use
  Company Number: JP-BAYER-200510548BYL

PATIENT
  Age: 72 Year
  Sex: Male
  Weight: 69 kg

DRUGS (13)
  1. CIPROXAN IV [Suspect]
     Indication: CHOLANGITIS
     Route: 042
     Dates: start: 20050928, end: 20050930
  2. CIPROXAN IV [Suspect]
     Route: 042
     Dates: start: 20051005, end: 20051009
  3. NORVASC [Concomitant]
     Dosage: AS USED: 5 MG  UNIT DOSE: 5 MG
     Route: 048
     Dates: end: 20051001
  4. NU-LOTAN [Concomitant]
     Dosage: TOTAL DAILY DOSE: 50 MG  UNIT DOSE: 50 MG
     Route: 048
     Dates: end: 20051001
  5. ASPIRIN [Concomitant]
     Dosage: TOTAL DAILY DOSE: 100 MG  UNIT DOSE: 100 MG
     Route: 048
     Dates: end: 20051001
  6. BEZATOL SR [Concomitant]
     Route: 048
     Dates: end: 20051001
  7. VOLTAREN [Concomitant]
     Route: 054
     Dates: start: 20050822, end: 20050926
  8. FAMOTIDINE [Concomitant]
     Dosage: UNIT DOSE: 20 MG
     Route: 048
     Dates: start: 20050922, end: 20050926
  9. GASTROM [Concomitant]
     Route: 048
     Dates: start: 20050922, end: 20050926
  10. CRAVIT [Concomitant]
     Route: 048
     Dates: start: 20050922, end: 20050926
  11. VANCOMYCIN HYDROCHLORIDE [Concomitant]
     Dosage: TOTAL DAILY DOSE: 2 G  UNIT DOSE: 500 MG
     Route: 048
     Dates: start: 20051017, end: 20051028
  12. MINOCYCLINE HCL [Concomitant]
     Dosage: TOTAL DAILY DOSE: 200 MG  UNIT DOSE: 100 MG
     Route: 041
     Dates: start: 20051010, end: 20051012
  13. OMNIPAQUE 300 [Concomitant]
     Dosage: TOTAL DAILY DOSE: 140 ML  UNIT DOSE: 300 ML
     Route: 042
     Dates: start: 20051019

REACTIONS (6)
  - HENOCH-SCHONLEIN PURPURA [None]
  - NEPHRITIS [None]
  - NEPHROTIC SYNDROME [None]
  - OEDEMA PERIPHERAL [None]
  - RASH [None]
  - TENDONITIS [None]
